FAERS Safety Report 18032093 (Version 1)
Quarter: 2020Q3

REPORT INFORMATION
  Report Type: Spontaneous
  Country: US (occurrence: US)
  Receive Date: 20200716
  Receipt Date: 20200716
  Transmission Date: 20201103
  Serious: Yes (Other)
  Sender: FDA-Public Use
  Company Number: None

PATIENT
  Age: 60 Year
  Sex: Male
  Weight: 108.9 kg

DRUGS (12)
  1. CULTURELLE 1 CAP PO DAILY [Concomitant]
     Dates: start: 20200712
  2. CARVEDILOL 6.25MG BID [Concomitant]
     Dates: start: 20200710
  3. CEFTRIAXONE 1G IV DAILY [Concomitant]
     Dates: start: 20200710
  4. VITAMIN C 1000MG DAILY TO BID [Concomitant]
     Dates: start: 20200711
  5. REMDESIVIR. [Suspect]
     Active Substance: REMDESIVIR
     Indication: COVID-19 PNEUMONIA
     Dosage: ?          OTHER FREQUENCY:200MG, 100MGX4D;?
     Route: 042
     Dates: start: 20200711, end: 20200715
  6. ASPIRIN EC 81MG PO DAILY [Concomitant]
     Dates: start: 20200711
  7. FAMOTIDINE 20MG PO Q12H [Concomitant]
     Dates: start: 20200710
  8. AZITHROMYCIN 500MG IV DAILY [Concomitant]
     Dates: start: 20200710
  9. BENZONATATE 100MG Q8H [Concomitant]
     Dates: start: 20200710
  10. ENOXAPARIN 30MG SUBQ Q12H [Concomitant]
     Dates: start: 20200712
  11. DEXAMETHASONE 6MG IV DAILY [Concomitant]
     Dates: start: 20200710
  12. ZINC SULFATE 200MG PO DAILY [Concomitant]
     Dates: start: 20200711

REACTIONS (2)
  - Oxygen saturation decreased [None]
  - Platelet count increased [None]

NARRATIVE: CASE EVENT DATE: 20200716
